FAERS Safety Report 13823691 (Version 2)
Quarter: 2017Q3

REPORT INFORMATION
  Report Type: Report from Study
  Country: None (occurrence: BR)
  Receive Date: 20170802
  Receipt Date: 20170810
  Transmission Date: 20171127
  Serious: Yes (Other)
  Sender: FDA-Public Use
  Company Number: BR-ABBVIE-17K-020-2054725-00

PATIENT
  Age: 49 Year
  Sex: Female
  Weight: 72 kg

DRUGS (2)
  1. HUMIRA [Suspect]
     Active Substance: ADALIMUMAB
     Indication: RHEUMATOID ARTHRITIS
     Route: 058
     Dates: start: 20170621, end: 2017
  2. HUMIRA [Suspect]
     Active Substance: ADALIMUMAB
     Route: 058
     Dates: start: 2017

REACTIONS (4)
  - Uterine leiomyoma [Recovering/Resolving]
  - Uterine enlargement [Recovering/Resolving]
  - Blood cholesterol abnormal [Unknown]
  - Uterine cyst [Recovering/Resolving]

NARRATIVE: CASE EVENT DATE: 201707
